FAERS Safety Report 23459067 (Version 1)
Quarter: 2024Q1

REPORT INFORMATION
  Report Type: Spontaneous
  Country: US (occurrence: US)
  Receive Date: 20240131
  Receipt Date: 20240131
  Transmission Date: 20240410
  Serious: No
  Sender: FDA-Public Use
  Company Number: US-862174955-ML2024-00465

PATIENT
  Sex: Male

DRUGS (1)
  1. DORZOLAMIDE\TIMOLOL [Suspect]
     Active Substance: DORZOLAMIDE\TIMOLOL
     Indication: Glaucoma
     Dosage: 22.3 MG/6.8 MG/ML
     Route: 047
     Dates: start: 202401

REACTIONS (4)
  - Eye irritation [Unknown]
  - Product dose omission issue [Unknown]
  - Product container issue [Unknown]
  - Wrong technique in product usage process [Unknown]
